FAERS Safety Report 8482981 (Version 6)
Quarter: 2013Q3

REPORT INFORMATION
  Report Type: Report from Study
  Country: GB (occurrence: GB)
  Receive Date: 20120329
  Receipt Date: 20130820
  Transmission Date: 20140515
  Serious: Yes (Death, Life-Threatening, Hospitalization)
  Sender: FDA-Public Use
  Company Number: GB-SANOFI-AVENTIS-2012SA018079

PATIENT
  Age: 62 Year
  Sex: Male
  Weight: 74.8 kg

DRUGS (2)
  1. CABAZITAXEL [Suspect]
     Indication: PROSTATE CANCER
     Route: 042
     Dates: start: 20120308, end: 20120308
  2. PREDNISOLONE [Suspect]
     Indication: PROSTATE CANCER
     Route: 048
     Dates: start: 20120308, end: 20120309

REACTIONS (2)
  - Pneumonitis [Not Recovered/Not Resolved]
  - Disease progression [Fatal]
